FAERS Safety Report 12791943 (Version 2)
Quarter: 2016Q4

REPORT INFORMATION
  Report Type: Spontaneous
  Country: FR (occurrence: FR)
  Receive Date: 20160929
  Receipt Date: 20161021
  Transmission Date: 20170207
  Serious: Yes (Other)
  Sender: FDA-Public Use
  Company Number: FR-BAYER-2016-188193

PATIENT
  Sex: Female

DRUGS (1)
  1. MIRENA [Suspect]
     Active Substance: LEVONORGESTREL
     Dosage: 20 MCG/24HR, CONT
     Route: 015
     Dates: start: 201205, end: 20160927

REACTIONS (6)
  - Vaginal discharge [None]
  - Ureaplasma infection [None]
  - Pain [None]
  - Device physical property issue [None]
  - Pelvic infection [None]
  - Gardnerella infection [None]
